FAERS Safety Report 6129096-6 (Version None)
Quarter: 2009Q1

REPORT INFORMATION
  Report Type: 
  Country: None (occurrence: None)
  Receive Date: 20090323
  Receipt Date: 20090323
  Transmission Date: 20090719
  Serious: Yes (Life-Threatening, Other)
  Sender: FDA-Public Use
  Company Number: None

PATIENT
  Sex: Female
  Weight: 72.3941 kg

DRUGS (2)
  1. CRESTOR [Suspect]
     Indication: BLOOD PRESSURE SYSTOLIC INCREASED
     Dosage: 5MG. EVERY OTHER DAY ORAL
     Route: 048
     Dates: start: 20081120, end: 20081125
  2. CRESTOR [Suspect]
     Indication: HIGH DENSITY LIPOPROTEIN INCREASED
     Dosage: 5MG. EVERY OTHER DAY ORAL
     Route: 048
     Dates: start: 20081120, end: 20081125

REACTIONS (3)
  - ARTHRALGIA [None]
  - CHROMATURIA [None]
  - LOSS OF CONSCIOUSNESS [None]
